FAERS Safety Report 11917081 (Version 3)
Quarter: 2016Q3

REPORT INFORMATION
  Report Type: Report from Study
  Country: DE (occurrence: DE)
  Receive Date: 20160114
  Receipt Date: 20160707
  Transmission Date: 20161109
  Serious: Yes (Hospitalization)
  Sender: FDA-Public Use
  Company Number: DE-BAYER-2015-463749

PATIENT
  Age: 22 Year
  Sex: Female

DRUGS (3)
  1. BETAFERON [Suspect]
     Active Substance: INTERFERON BETA-1B
     Indication: MULTIPLE SCLEROSIS
     Dosage: 250 ?G, QOD
     Route: 058
     Dates: start: 20131101
  2. BETAFERON [Suspect]
     Active Substance: INTERFERON BETA-1B
     Indication: MULTIPLE SCLEROSIS
     Dosage: 125 ?G, QOD
     Route: 058
     Dates: start: 20131101
  3. BETAFERON [Suspect]
     Active Substance: INTERFERON BETA-1B
     Indication: MULTIPLE SCLEROSIS
     Dosage: 0.5 ML, QD

REACTIONS (9)
  - Circulatory collapse [None]
  - Weight decreased [None]
  - Product use issue [Unknown]
  - Injection site reaction [Recovering/Resolving]
  - Nausea [None]
  - Therapy cessation [Unknown]
  - Dizziness [None]
  - Product use issue [None]
  - Eating disorder [None]
